FAERS Safety Report 10574116 (Version 1)
Quarter: 2014Q4

REPORT INFORMATION
  Report Type: Spontaneous
  Country: FR (occurrence: FR)
  Receive Date: 20141110
  Receipt Date: 20141110
  Transmission Date: 20150529
  Serious: Yes (Other)
  Sender: FDA-Public Use
  Company Number: PHHY2014FR145217

PATIENT
  Age: 78 Year
  Sex: Male

DRUGS (2)
  1. LEPONEX [Suspect]
     Active Substance: CLOZAPINE
     Dosage: 0.5 DF,
     Route: 065
  2. LEPONEX [Suspect]
     Active Substance: CLOZAPINE
     Indication: PRODUCT USED FOR UNKNOWN INDICATION
     Dosage: 25 MG, QD
     Route: 065
     Dates: start: 20140918, end: 20140918

REACTIONS (3)
  - Incorrect dose administered [Recovered/Resolved]
  - Somnolence [Recovered/Resolved]
  - Obsessive thoughts [Recovered/Resolved]

NARRATIVE: CASE EVENT DATE: 20140918
